FAERS Safety Report 9235312 (Version 1)
Quarter: 2013Q2

REPORT INFORMATION
  Report Type: Spontaneous
  Country: US (occurrence: US)
  Receive Date: 20130417
  Receipt Date: 20130417
  Transmission Date: 20140414
  Serious: No
  Sender: FDA-Public Use
  Company Number: US-009507513-1304USA007322

PATIENT
  Age: 43 Year
  Sex: Male

DRUGS (1)
  1. AZASITE [Suspect]
     Indication: HORDEOLUM
     Dosage: 1 DF, QD
     Route: 031
     Dates: start: 20130409, end: 20130412

REACTIONS (2)
  - Drug dose omission [Unknown]
  - Product packaging quantity issue [Unknown]
